FAERS Safety Report 18839591 (Version 2)
Quarter: 2021Q1

REPORT INFORMATION
  Report Type: Report from Study
  Country: JO (occurrence: JO)
  Receive Date: 20210203
  Receipt Date: 20210212
  Transmission Date: 20210419
  Serious: No
  Sender: FDA-Public Use
  Company Number: JO-EMD SERONO-9187608

PATIENT
  Age: 23 Year
  Sex: Female

DRUGS (2)
  1. REBIF [Suspect]
     Active Substance: INTERFERON BETA-1A
     Indication: MULTIPLE SCLEROSIS
     Dosage: PREFILLED SYRINGE
     Dates: start: 20200729
  2. REBIF [Suspect]
     Active Substance: INTERFERON BETA-1A
     Dosage: TOOK HALF OF THE DOSE OF REBIF THREE TIMES A WEEK
     Dates: start: 20201108

REACTIONS (6)
  - Ill-defined disorder [Unknown]
  - Dysstasia [Recovering/Resolving]
  - Stress [Unknown]
  - Gait disturbance [Unknown]
  - Pain in extremity [Recovering/Resolving]
  - Gait inability [Recovering/Resolving]

NARRATIVE: CASE EVENT DATE: 20200916
